FAERS Safety Report 8912570 (Version 2)
Quarter: 2013Q1

REPORT INFORMATION
  Report Type: Spontaneous
  Country: DE (occurrence: DE)
  Receive Date: 20121116
  Receipt Date: 20130104
  Transmission Date: 20140127
  Serious: Yes (Hospitalization)
  Sender: FDA-Public Use
  Company Number: DE-009507513-1211DEU005603

PATIENT
  Age: 29 Year
  Sex: Female
  Weight: 65 kg

DRUGS (1)
  1. NUVARING [Suspect]
     Indication: CONTRACEPTION
     Dosage: 11.7MG/2.7MG, Q3W
     Route: 067
     Dates: start: 2006, end: 201210

REACTIONS (3)
  - Pancreatitis [Recovering/Resolving]
  - Pancreatitis [Unknown]
  - Infection [Unknown]
